FAERS Safety Report 8958864 (Version 2)
Quarter: 2013Q1

REPORT INFORMATION
  Report Type: Spontaneous
  Country: JP (occurrence: JP)
  Receive Date: 20121211
  Receipt Date: 20130102
  Transmission Date: 20140127
  Serious: Yes (Hospitalization)
  Sender: FDA-Public Use
  Company Number: JP-009507513-1212JPN002860

PATIENT
  Age: 78 Year
  Sex: Female

DRUGS (3)
  1. FOSAMAC TABLETS 35MG [Suspect]
     Indication: OSTEOPOROSIS
     Dosage: 35 MG, QW
     Route: 048
     Dates: start: 20061222, end: 20121106
  2. NORVASC [Concomitant]
     Dosage: 2.5 MG, QD
     Route: 048
     Dates: start: 2006
  3. LENDORMIN [Concomitant]
     Dosage: DAILY DOSAGE UNKNOWN
     Route: 065
     Dates: start: 2006

REACTIONS (1)
  - Femur fracture [Not Recovered/Not Resolved]
